APPROVED DRUG PRODUCT: AMINOHIPPURATE SODIUM
Active Ingredient: AMINOHIPPURATE SODIUM
Strength: 20%
Dosage Form/Route: INJECTABLE;INJECTION
Application: N005619 | Product #001
Applicant: MERCK AND CO INC
Approved: Approved Prior to Jan 1, 1982 | RLD: No | RS: No | Type: DISCN